FAERS Safety Report 8597917-3 (Version None)
Quarter: 2012Q3

REPORT INFORMATION
  Report Type: 
  Country: None (occurrence: None)
  Receive Date: 20120816
  Receipt Date: 20120810
  Transmission Date: 20120928
  Serious: Yes (Hospitalization)
  Sender: FDA-Public Use
  Company Number: HR-ASTELLAS-2012EU005759

PATIENT
  Sex: Male
  Weight: 130 kg

DRUGS (8)
  1. VESICARE [Suspect]
     Indication: PROSTATIC ADENOMA
     Dosage: 5 MG, UID/QD
     Route: 048
     Dates: start: 20120531, end: 20120611
  2. CARVETREND [Concomitant]
     Indication: CARDIOMYOPATHY
     Dosage: 6.25 MG, BID
     Route: 048
     Dates: start: 20080703
  3. ALLOPURINOL [Concomitant]
     Indication: GOUT
     Dosage: 100 MG, UID/QD
     Route: 048
     Dates: start: 20080213
  4. ISOSORBIDE MONONITRATE [Concomitant]
     Indication: CARDIOMYOPATHY
     Dosage: 20 MG, BID
     Route: 048
     Dates: start: 20080213
  5. GLUCOVANCE [Concomitant]
     Indication: TYPE 2 DIABETES MELLITUS
     Dosage: 1 DF, BID
     Route: 048
     Dates: start: 20120222
  6. IRUZID                             /01613901/ [Concomitant]
     Indication: ESSENTIAL HYPERTENSION
     Dosage: 1 DF, UID/QD
     Route: 048
     Dates: start: 20080213
  7. FURSEMID                           /00032601/ [Concomitant]
     Dosage: 100 MG, OTHER
     Route: 048
     Dates: start: 20080213
  8. KALINOR                            /00031402/ [Concomitant]
     Indication: CARDIOMYOPATHY
     Dosage: 0.5 DF, OTHER
     Route: 048

REACTIONS (2)
  - METAMORPHOPSIA [None]
  - DRY MOUTH [None]
